FAERS Safety Report 17402884 (Version 1)
Quarter: 2020Q1

REPORT INFORMATION
  Report Type: Spontaneous
  Country: AT (occurrence: AT)
  Receive Date: 20200211
  Receipt Date: 20200211
  Transmission Date: 20200409
  Serious: Yes (Other)
  Sender: FDA-Public Use
  Company Number: AT-MYLANLABS-2020M1014608

PATIENT
  Age: 42 Year
  Sex: Male

DRUGS (2)
  1. PACLITAXEL. [Concomitant]
     Active Substance: PACLITAXEL
     Indication: PANCREATIC CARCINOMA
     Dosage: UNK (75% OF STANDARD DOSE)
     Route: 065
     Dates: start: 20160226, end: 201607
  2. GEMCITABINE. [Suspect]
     Active Substance: GEMCITABINE
     Indication: CHEMOTHERAPY
     Dosage: 1000 MILLIGRAM/KILOGRAM (1000 MG/KG D1,8,15, REPEAT D29 - PALLIATIVE)
     Route: 065
     Dates: start: 20160226, end: 201607

REACTIONS (1)
  - Pneumonitis [Unknown]

NARRATIVE: CASE EVENT DATE: 20160711
